FAERS Safety Report 9106321 (Version 2)
Quarter: 2013Q3

REPORT INFORMATION
  Report Type: Report from Study
  Country: US (occurrence: US)
  Receive Date: 20130221
  Receipt Date: 20130809
  Transmission Date: 20140515
  Serious: Yes (Other)
  Sender: FDA-Public Use
  Company Number: US-ABBOTT-13P-163-1046246-00

PATIENT
  Age: 47 Year
  Sex: Male
  Weight: 85.81 kg

DRUGS (14)
  1. HUMIRA PEN [Suspect]
     Indication: RHEUMATOID ARTHRITIS
     Route: 058
     Dates: start: 2009, end: 20121227
  2. PREDNISONE [Concomitant]
     Indication: RHEUMATOID ARTHRITIS
     Dates: start: 2011
  3. PREDNISONE [Concomitant]
     Route: 048
  4. CYCLOBENZAPRINE [Concomitant]
     Indication: BACK PAIN
     Dosage: 1 - 2 TABS PER DAY PRN
  5. NAPROXEN [Concomitant]
     Indication: RHEUMATOID ARTHRITIS
  6. HYDROMORPHONE [Concomitant]
     Indication: RHEUMATOID ARTHRITIS
     Dates: start: 2011
  7. SILVER COLLOIDAL [Concomitant]
     Indication: PRODUCT USED FOR UNKNOWN INDICATION
     Dosage: ONCE DAILY (EVERY DAY) AS REQUIRED
     Route: 048
  8. AMBIEN [Concomitant]
     Indication: PRODUCT USED FOR UNKNOWN INDICATION
     Dosage: AT BEDTIME
     Route: 048
  9. ALEVE [Concomitant]
     Indication: PRODUCT USED FOR UNKNOWN INDICATION
     Dosage: ONCE DAILY (EVERY DAY) AS NEEDED
     Route: 048
  10. GLUCOSAMINE + FISH OIL [Concomitant]
     Indication: PRODUCT USED FOR UNKNOWN INDICATION
     Dosage: ONE POWDER
  11. NAPROXEN [Concomitant]
     Indication: PRODUCT USED FOR UNKNOWN INDICATION
     Route: 048
  12. NORCO [Concomitant]
     Indication: PRODUCT USED FOR UNKNOWN INDICATION
     Dosage: 325MG/5MG
  13. CEPHALEXIN AMEL [Concomitant]
     Indication: PRODUCT USED FOR UNKNOWN INDICATION
     Dosage: FOR ONE DAY
     Route: 048
  14. DILAUDID [Concomitant]
     Indication: PRODUCT USED FOR UNKNOWN INDICATION
     Dosage: SOLID (HYDROMORPHONE HCL): OUTSIDE RX
     Route: 048

REACTIONS (23)
  - Lymphadenopathy [Unknown]
  - Salivary gland neoplasm [Not Recovered/Not Resolved]
  - B-cell lymphoma [Unknown]
  - Back pain [Not Recovered/Not Resolved]
  - Musculoskeletal stiffness [Unknown]
  - Myalgia [Unknown]
  - Rash [Unknown]
  - Rash [Unknown]
  - Lip dry [Unknown]
  - Arthralgia [Unknown]
  - Joint swelling [Unknown]
  - Movement disorder [Unknown]
  - Back pain [Unknown]
  - Weight increased [Unknown]
  - Dermatitis [Unknown]
  - Parotid gland enlargement [Unknown]
  - Neck pain [Unknown]
  - Arthralgia [Unknown]
  - Arthralgia [Unknown]
  - Lymphoma [Unknown]
  - Lymphadenopathy [Unknown]
  - Local swelling [Unknown]
  - Depression [Unknown]
